FAERS Safety Report 7588608-6 (Version None)
Quarter: 2011Q3

REPORT INFORMATION
  Report Type: 
  Country: None (occurrence: None)
  Receive Date: 20110705
  Receipt Date: 20110627
  Transmission Date: 20111222
  Serious: Yes (Other)
  Sender: FDA-Public Use
  Company Number: DE-BRISTOL-MYERS SQUIBB COMPANY-15861917

PATIENT
  Age: 46 Year
  Sex: Female

DRUGS (1)
  1. IRBESARTAN + HYDROCHLOROTHIAZIDE [Suspect]
     Dosage: 1DF:8 TABLETS
     Route: 048
     Dates: start: 20110601

REACTIONS (4)
  - AGITATION [None]
  - SUICIDE ATTEMPT [None]
  - HYPERVENTILATION [None]
  - DRY MOUTH [None]
